FAERS Safety Report 24631666 (Version 3)
Quarter: 2025Q4

REPORT INFORMATION
  Report Type: Spontaneous
  Country: US (occurrence: US)
  Receive Date: 20241118
  Receipt Date: 20251202
  Transmission Date: 20260117
  Serious: No
  Sender: PFIZER
  Company Number: US-PFIZER INC-PV202400147700

PATIENT
  Age: 53 Year
  Sex: Female

DRUGS (5)
  1. TUKYSA [Suspect]
     Active Substance: TUCATINIB
     Indication: Brain neoplasm malignant
     Dosage: 300 MG (2 TABLETS), 2X/DAY (TWO PILLS IN THE MORNING AND TWO PILLS AT NIGHT)
  2. TUKYSA [Suspect]
     Active Substance: TUCATINIB
     Dosage: 150 MG (1 TABLET), 2X/DAY
  3. TUKYSA [Suspect]
     Active Substance: TUCATINIB
     Dosage: UNK
  4. TRAZODONE [Concomitant]
     Active Substance: TRAZODONE HYDROCHLORIDE
     Indication: Insomnia
     Dosage: UNK (AT NIGHT)
  5. DEXAMETHASONE [Concomitant]
     Active Substance: DEXAMETHASONE
     Dosage: UNK

REACTIONS (3)
  - Headache [Unknown]
  - Sunburn [Unknown]
  - Off label use [Unknown]
